FAERS Safety Report 19194060 (Version 1)
Quarter: 2021Q2

REPORT INFORMATION
  Report Type: Spontaneous
  Country: US (occurrence: US)
  Receive Date: 20210429
  Receipt Date: 20210429
  Transmission Date: 20210717
  Serious: No
  Sender: FDA-Public Use
  Company Number: US-SA-2021SA139824

PATIENT
  Age: 47 Year
  Sex: Male

DRUGS (5)
  1. PAROXETINE EG [Concomitant]
  2. ZYRTEC [Concomitant]
     Active Substance: CETIRIZINE HYDROCHLORIDE
  3. PANTOPRAZOLE SODIUM. [Concomitant]
     Active Substance: PANTOPRAZOLE SODIUM
  4. DUPIXENT [Suspect]
     Active Substance: DUPILUMAB
     Indication: DERMATITIS ATOPIC
     Dosage: 300 MG, QOW
     Route: 058
     Dates: start: 202012
  5. VERAPAMIL HCL [Concomitant]
     Active Substance: VERAPAMIL HYDROCHLORIDE

REACTIONS (3)
  - Product dose omission issue [Unknown]
  - Therapeutic response decreased [Unknown]
  - Dry skin [Unknown]

NARRATIVE: CASE EVENT DATE: 20210422
